FAERS Safety Report 24456756 (Version 1)
Quarter: 2024Q4

REPORT INFORMATION
  Report Type: Spontaneous
  Country: US (occurrence: US)
  Receive Date: 20241017
  Receipt Date: 20241017
  Transmission Date: 20250115
  Serious: No
  Sender: CIPLA
  Company Number: US-CIPLA LTD.-2024US06238

PATIENT

DRUGS (3)
  1. LEUPROLIDE ACETATE [Suspect]
     Active Substance: LEUPROLIDE ACETATE
     Indication: Product used for unknown indication
     Dosage: UNK
     Route: 065
     Dates: start: 202403
  2. LEUPROLIDE ACETATE [Suspect]
     Active Substance: LEUPROLIDE ACETATE
     Dosage: UNK, DOSE (1 INJECTION), FREQUENCY (ONCE IN EVERY 3 MONTHS)
     Route: 030
     Dates: start: 20240419
  3. LEUPROLIDE ACETATE [Suspect]
     Active Substance: LEUPROLIDE ACETATE
     Dosage: UNK, DOSE (1 INJECTION), FREQUENCY (ONCE IN EVERY 3 MONTHS)
     Route: 030
     Dates: start: 20240420

REACTIONS (3)
  - Inappropriate schedule of product administration [Unknown]
  - Intentional product misuse [Unknown]
  - Device occlusion [Unknown]

NARRATIVE: CASE EVENT DATE: 20240419
